FAERS Safety Report 18937343 (Version 1)
Quarter: 2021Q1

REPORT INFORMATION
  Report Type: Report from Study
  Country: JP (occurrence: JP)
  Receive Date: 20210225
  Receipt Date: 20210225
  Transmission Date: 20210420
  Serious: Yes (Death, Hospitalization, Other)
  Sender: FDA-Public Use
  Company Number: JP-SA-2015SA217956

PATIENT
  Age: 79 Year
  Sex: Male
  Weight: 46 kg

DRUGS (8)
  1. CABAZITAXEL [Suspect]
     Active Substance: CABAZITAXEL
     Indication: HORMONE-REFRACTORY PROSTATE CANCER
     Dosage: 35 MG/BODY
     Route: 041
     Dates: start: 20151212, end: 20151212
  2. G LASTA [Concomitant]
     Active Substance: PEGFILGRASTIM
     Indication: PRODUCT USED FOR UNKNOWN INDICATION
     Dosage: 3.6 MG
     Route: 065
     Dates: start: 20150921, end: 20151214
  3. DEXART [Concomitant]
     Active Substance: DEXAMETHASONE SODIUM PHOSPHATE
     Indication: PREMEDICATION
     Dosage: 6.6 MG
     Route: 065
     Dates: start: 20151212, end: 20151220
  4. NEORESTAR [Concomitant]
     Active Substance: CHLORPHENIRAMINE MALEATE
     Indication: PREMEDICATION
     Dosage: 10 MG, QD
     Route: 065
     Dates: start: 20151212, end: 20151212
  5. FAMOTIDINE. [Concomitant]
     Active Substance: FAMOTIDINE
     Indication: PREMEDICATION
     Dosage: 20 MG
     Route: 065
     Dates: start: 20151212, end: 20151212
  6. DECADRON (DEXAMETHASONE SODIUM PHOSPHATE) [Concomitant]
     Active Substance: DEXAMETHASONE SODIUM PHOSPHATE
     Indication: PRODUCT USED FOR UNKNOWN INDICATION
     Route: 065
     Dates: start: 20130111, end: 20151214
  7. SEROTONE [Concomitant]
     Active Substance: AZASETRON HYDROCHLORIDE
     Indication: PRODUCT USED FOR UNKNOWN INDICATION
     Route: 065
  8. CABAZITAXEL [Suspect]
     Active Substance: CABAZITAXEL
     Dosage: 35 MG/BODY
     Route: 041
     Dates: start: 20150919, end: 20150919

REACTIONS (4)
  - Neutrophil count decreased [Recovered/Resolved]
  - Febrile neutropenia [Fatal]
  - Febrile neutropenia [Recovered/Resolved]
  - Pyrexia [Fatal]

NARRATIVE: CASE EVENT DATE: 20150924
